FAERS Safety Report 24752516 (Version 1)
Quarter: 2024Q4

REPORT INFORMATION
  Report Type: Spontaneous
  Country: FR (occurrence: FR)
  Receive Date: 20241219
  Receipt Date: 20241219
  Transmission Date: 20250115
  Serious: Yes (Hospitalization, Other)
  Sender: ALEXION PHARMACEUTICALS
  Company Number: None

PATIENT
  Age: 75 Year
  Weight: 69 kg

DRUGS (28)
  1. DAPAGLIFLOZIN [Suspect]
     Active Substance: DAPAGLIFLOZIN
     Indication: Insulin-requiring type 2 diabetes mellitus
  2. DAPAGLIFLOZIN [Suspect]
     Active Substance: DAPAGLIFLOZIN
     Route: 048
  3. DAPAGLIFLOZIN [Suspect]
     Active Substance: DAPAGLIFLOZIN
  4. DAPAGLIFLOZIN [Suspect]
     Active Substance: DAPAGLIFLOZIN
     Route: 048
  5. ALDACTONE [Suspect]
     Active Substance: SPIRONOLACTONE
     Indication: Hypertension
  6. ALDACTONE [Suspect]
     Active Substance: SPIRONOLACTONE
     Route: 048
  7. ALDACTONE [Suspect]
     Active Substance: SPIRONOLACTONE
  8. ALDACTONE [Suspect]
     Active Substance: SPIRONOLACTONE
     Route: 048
  9. IOMERON [Suspect]
     Active Substance: IOMEPROL
     Indication: Angiocardiogram
     Route: 042
  10. IOMERON [Suspect]
     Active Substance: IOMEPROL
  11. BISOPROLOL [Suspect]
     Active Substance: BISOPROLOL
     Indication: Hypertension
     Route: 048
  12. BISOPROLOL [Suspect]
     Active Substance: BISOPROLOL
  13. LOVENOX [Suspect]
     Active Substance: ENOXAPARIN SODIUM
     Indication: Acute myocardial infarction
     Route: 058
  14. LOVENOX [Suspect]
     Active Substance: ENOXAPARIN SODIUM
  15. ATORVASTATIN [Suspect]
     Active Substance: ATORVASTATIN
     Indication: Dyslipidaemia
     Route: 048
  16. ATORVASTATIN [Suspect]
     Active Substance: ATORVASTATIN
  17. FUROSEMIDE [Suspect]
     Active Substance: FUROSEMIDE
     Indication: Acute myocardial infarction
     Route: 042
  18. FUROSEMIDE [Suspect]
     Active Substance: FUROSEMIDE
  19. CORDARONE [Suspect]
     Active Substance: AMIODARONE HYDROCHLORIDE
     Indication: Cardiac ventricular disorder
     Route: 048
  20. CORDARONE [Suspect]
     Active Substance: AMIODARONE HYDROCHLORIDE
  21. RACECADOTRIL [Suspect]
     Active Substance: RACECADOTRIL
     Indication: Diarrhoea
     Route: 048
  22. RACECADOTRIL [Suspect]
     Active Substance: RACECADOTRIL
  23. Serecor [Concomitant]
     Indication: Cardiac ventricular disorder
     Route: 048
  24. Serecor [Concomitant]
  25. COLCHICINE [Concomitant]
     Active Substance: COLCHICINE
     Indication: Gout
  26. COLCHICINE [Concomitant]
     Active Substance: COLCHICINE
     Route: 048
  27. COLCHICINE [Concomitant]
     Active Substance: COLCHICINE
  28. COLCHICINE [Concomitant]
     Active Substance: COLCHICINE
     Route: 048

REACTIONS (1)
  - Drug reaction with eosinophilia and systemic symptoms [Recovering/Resolving]
